FAERS Safety Report 8266891-1 (Version None)
Quarter: 2012Q2

REPORT INFORMATION
  Report Type: 
  Country: None (occurrence: None)
  Receive Date: 20120404
  Receipt Date: 20120404
  Transmission Date: 20120825
  Serious: Yes (Life-Threatening, Hospitalization)
  Sender: FDA-Public Use
  Company Number: None

PATIENT
  Age: 65 Year
  Sex: Male
  Weight: 76.2043 kg

DRUGS (2)
  1. METOPROLOL TARTRATE [Suspect]
     Indication: HYPERTENSION
     Dosage: 50 MG DAILY PO
     Route: 048
     Dates: start: 20070321, end: 20080102
  2. METOPROLOL TARTRATE [Suspect]
     Indication: ARTERIOSCLEROSIS CORONARY ARTERY
     Dosage: 50 MG DAILY PO
     Route: 048
     Dates: start: 20070321, end: 20080102

REACTIONS (2)
  - CEREBROVASCULAR ACCIDENT [None]
  - PRODUCT SUBSTITUTION ISSUE [None]
